FAERS Safety Report 15455238 (Version 1)
Quarter: 2018Q4

REPORT INFORMATION
  Report Type: Report from Study
  Country: IN (occurrence: IN)
  Receive Date: 20181002
  Receipt Date: 20181002
  Transmission Date: 20190204
  Serious: Yes (Death, Other)
  Sender: FDA-Public Use
  Company Number: IN-PFIZER INC-2018394166

PATIENT
  Age: 76 Year
  Sex: Female

DRUGS (8)
  1. TIGECYCLINE. [Suspect]
     Active Substance: TIGECYCLINE
     Indication: FEMUR FRACTURE
     Dosage: UNK
  2. LINEZOLID. [Suspect]
     Active Substance: LINEZOLID
     Indication: SEPSIS
  3. COLISTIN [Suspect]
     Active Substance: COLISTIN
     Indication: SEPSIS
  4. LINEZOLID. [Suspect]
     Active Substance: LINEZOLID
     Indication: FEMUR FRACTURE
     Dosage: 600 MG, 2X/DAY
     Route: 042
  5. TIGECYCLINE. [Suspect]
     Active Substance: TIGECYCLINE
     Indication: SEPSIS
  6. COLISTIN [Suspect]
     Active Substance: COLISTIN
     Indication: FEMUR FRACTURE
     Dosage: UNK
  7. CEFEPIME/TAZOBACTAM [Suspect]
     Active Substance: CEFEPIME HYDROCHLORIDE\TAZOBACTAM SODIUM
     Indication: SEPSIS
  8. CEFEPIME/TAZOBACTAM [Suspect]
     Active Substance: CEFEPIME HYDROCHLORIDE\TAZOBACTAM SODIUM
     Indication: FEMUR FRACTURE
     Dosage: UNK

REACTIONS (1)
  - Pathogen resistance [Fatal]
